FAERS Safety Report 22394281 (Version 1)
Quarter: 2023Q2

REPORT INFORMATION
  Report Type: Spontaneous
  Country: US (occurrence: None)
  Receive Date: 20230601
  Receipt Date: 20230601
  Transmission Date: 20230721
  Serious: Yes (Other)
  Sender: FDA-Public Use
  Company Number: 2023A121564

PATIENT
  Sex: Female

DRUGS (1)
  1. FARXIGA [Suspect]
     Active Substance: DAPAGLIFLOZIN PROPANEDIOL
     Indication: Diabetes mellitus
     Route: 048

REACTIONS (8)
  - Bladder cancer [Unknown]
  - Myocardial infarction [Unknown]
  - Fungal infection [Unknown]
  - Insomnia [Unknown]
  - Urinary tract infection [Unknown]
  - Pain [Unknown]
  - Dysuria [Unknown]
  - Intentional product misuse [Unknown]
